FAERS Safety Report 5954007-3 (Version None)
Quarter: 2008Q4

REPORT INFORMATION
  Report Type: 
  Country: None (occurrence: None)
  Receive Date: 20081114
  Receipt Date: 20081105
  Transmission Date: 20090506
  Serious: Yes (Other)
  Sender: FDA-Public Use
  Company Number: FR-AMGEN-US318165

PATIENT
  Sex: Female

DRUGS (1)
  1. ENBREL [Suspect]
     Indication: RHEUMATOID ARTHRITIS
     Route: 058
     Dates: start: 20070101, end: 20081030

REACTIONS (5)
  - FOOT OPERATION [None]
  - MEDICAL DEVICE COMPLICATION [None]
  - NAIL INJURY [None]
  - PARONYCHIA [None]
  - STAPHYLOCOCCAL SKIN INFECTION [None]
